FAERS Safety Report 12917642 (Version 2)
Quarter: 2016Q4

REPORT INFORMATION
  Report Type: Spontaneous
  Country: US (occurrence: US)
  Receive Date: 20161107
  Receipt Date: 20161122
  Transmission Date: 20170207
  Serious: No
  Sender: FDA-Public Use
  Company Number: US-PFIZER INC-2016510260

PATIENT
  Sex: Male

DRUGS (4)
  1. VFEND [Suspect]
     Active Substance: VORICONAZOLE
     Indication: ASPERGILLUS INFECTION
     Dosage: 200MG 2 TABLETS A DAY
     Route: 048
     Dates: start: 2007
  2. ZETIA [Concomitant]
     Active Substance: EZETIMIBE
     Indication: BLOOD CHOLESTEROL INCREASED
     Dosage: 10 MG, 1X/DAY
  3. AMLODIPINE [Concomitant]
     Active Substance: AMLODIPINE BESYLATE
     Indication: HYPERTENSION
     Dosage: 5 MG, 1X/DAY
  4. VFEND [Suspect]
     Active Substance: VORICONAZOLE
     Dosage: 200MG 1 TABLETS A DAY (SOMETIMES TOOK 2 TABLETS A DAY HERE AND THERE)
     Route: 048

REACTIONS (8)
  - Head discomfort [Not Recovered/Not Resolved]
  - Intentional product misuse [Unknown]
  - Drug intolerance [Unknown]
  - Dry skin [Unknown]
  - Skin disorder [Not Recovered/Not Resolved]
  - Pain of skin [Unknown]
  - Headache [Unknown]
  - Facial pain [Not Recovered/Not Resolved]

NARRATIVE: CASE EVENT DATE: 2012
